FAERS Safety Report 10752013 (Version 2)
Quarter: 2015Q1

REPORT INFORMATION
  Report Type: Spontaneous
  Country: BR (occurrence: BR)
  Receive Date: 20150130
  Receipt Date: 20150202
  Transmission Date: 20150721
  Serious: Yes (Hospitalization, Other)
  Sender: FDA-Public Use
  Company Number: BR-ABBVIE-15P-020-1340243-00

PATIENT
  Age: 52 Year
  Sex: Female
  Weight: 77.8 kg

DRUGS (9)
  1. SYNTHROID [Suspect]
     Active Substance: LEVOTHYROXINE SODIUM
     Route: 065
  2. ROCALTROL [Concomitant]
     Active Substance: CALCITRIOL
     Indication: MUSCLE SPASMS
     Dosage: DAILY DOSE: 1 CAPSULE; AFTER BREAKFAST AT 7:30 A.M.
     Dates: start: 200911
  3. ROCALTROL [Concomitant]
     Active Substance: CALCITRIOL
     Indication: PARATHYROID DISORDER
  4. CLINFAR [Concomitant]
     Active Substance: SIMVASTATIN
     Indication: PRODUCT USED FOR UNKNOWN INDICATION
     Dosage: DAILY DOSE:10 MG; AT 8 P.M.
     Route: 048
     Dates: start: 20150121
  5. SYNTHROID [Suspect]
     Active Substance: LEVOTHYROXINE SODIUM
     Route: 065
  6. SYNTHROID [Suspect]
     Active Substance: LEVOTHYROXINE SODIUM
     Indication: HYPOTHYROIDISM
     Dosage: DAILY DOSE: 50 MICROGRAM; 1 HOUR BEFORE BREAKFAST AROUND 6 A.M.
     Route: 048
     Dates: end: 201002
  7. SYNTHROID [Suspect]
     Active Substance: LEVOTHYROXINE SODIUM
     Route: 065
  8. CALMAG D [Concomitant]
     Indication: PRODUCT USED FOR UNKNOWN INDICATION
     Dosage: DAILY DOSE: 2 TABLET; IN THE MORNING, 2H AFTER BREAKFAST
     Dates: start: 201410
  9. ROCALTROL [Concomitant]
     Active Substance: CALCITRIOL
     Indication: PRODUCT USED FOR UNKNOWN INDICATION

REACTIONS (3)
  - Neoplasm malignant [Recovered/Resolved]
  - Intervertebral disc protrusion [Not Recovered/Not Resolved]
  - Muscle spasms [Not Recovered/Not Resolved]

NARRATIVE: CASE EVENT DATE: 20091005
